FAERS Safety Report 5792074-0 (Version None)
Quarter: 2008Q2

REPORT INFORMATION
  Report Type: 
  Country: None (occurrence: None)
  Receive Date: 20080626
  Receipt Date: 20080311
  Transmission Date: 20081010
  Serious: No
  Sender: FDA-Public Use
  Company Number: US-ASTRAZENECA-2008UW04948

PATIENT
  Age: 78 Year
  Sex: Female
  Weight: 50.8 kg

DRUGS (10)
  1. PULMICORT RESPULES [Suspect]
     Indication: CHRONIC OBSTRUCTIVE PULMONARY DISEASE
     Dosage: 0.25 MG/ML Q6H
     Route: 055
     Dates: start: 20070301, end: 20080301
  2. PULMICORT RESPULES [Suspect]
     Indication: ASTHMA
     Dosage: 0.25 MG/ML Q6H
     Route: 055
     Dates: start: 20070301, end: 20080301
  3. DIOVAN [Concomitant]
  4. TYZAC [Concomitant]
  5. MAXAIR [Concomitant]
  6. THEOPHYLLINE [Concomitant]
  7. ALBUTEROL [Concomitant]
  8. SEREVENT [Concomitant]
  9. PREMARIN [Concomitant]
  10. HYDROCHLOROTHIAZIDE [Concomitant]

REACTIONS (1)
  - MOUTH ULCERATION [None]
